FAERS Safety Report 8047000-0 (Version None)
Quarter: 2012Q1

REPORT INFORMATION
  Report Type: 
  Country: None (occurrence: None)
  Receive Date: 20120116
  Receipt Date: 20120111
  Transmission Date: 20120608
  Serious: Yes (Hospitalization, Other)
  Sender: FDA-Public Use
  Company Number: US-AMGEN-USASP2010005634

PATIENT
  Age: 63 Year
  Sex: Female
  Weight: 108.6 kg

DRUGS (24)
  1. NPLATE [Suspect]
     Dates: start: 20100607, end: 20100607
  2. CRANBERRY                          /01512301/ [Concomitant]
     Dosage: 400 MG, BID
  3. PLATELETS [Concomitant]
     Dosage: 1 UNIT, UNK
  4. FUROSEMIDE [Concomitant]
     Dosage: 40 MG, QD
  5. CORTICOSTEROIDS [Concomitant]
     Indication: IDIOPATHIC THROMBOCYTOPENIC PURPURA
  6. ZANTAC                             /00550801/ [Concomitant]
     Dosage: 150 MG, QD
  7. MULTIVITAMIN                       /00097801/ [Concomitant]
     Dosage: UNK UNK, QD
  8. INDOMETHACIN [Concomitant]
  9. MYCOSTATIN                         /00036501/ [Concomitant]
     Dosage: 5 ML, Q6H
     Route: 048
     Dates: start: 20100527
  10. POTASSIUM GLUCONATE TAB [Concomitant]
     Dosage: 550 MG, QD
  11. BACTRIM [Concomitant]
     Dosage: UNK UNK, QOD
  12. VITAMIN B COMPLEX                  /00003501/ [Concomitant]
     Dosage: UNK UNK, QD
     Route: 048
     Dates: start: 20100614
  13. BLOOD AND RELATED PRODUCTS [Concomitant]
     Dosage: 2 UNIT, UNK
     Dates: start: 20100607, end: 20100607
  14. DIPHENHYDRAMINE HCL [Concomitant]
     Dosage: 25 MG, UNK
     Route: 048
  15. LONOX [Concomitant]
     Dosage: 5 MG, PRN
     Route: 048
     Dates: start: 20100614
  16. NPLATE [Suspect]
     Indication: IDIOPATHIC THROMBOCYTOPENIC PURPURA
     Dosage: 1.4 MUG/KG, UNK
     Dates: start: 20100607, end: 20100607
  17. VITAMIN C                          /00008001/ [Concomitant]
     Dosage: 100 MG, UNK
     Route: 048
     Dates: start: 20100614
  18. VITAMIN E                          /00110501/ [Concomitant]
     Dosage: 400 IU, QD
     Route: 048
     Dates: start: 20100614
  19. SYNTHROID [Concomitant]
     Dosage: 100 MUG, QD
     Route: 048
     Dates: start: 20100614
  20. VITAMIN D [Concomitant]
     Dosage: 400 IU, QD
     Route: 048
     Dates: start: 20100614
  21. ULTRAM [Concomitant]
     Dosage: 50 MG, PRN
     Route: 048
     Dates: start: 20100527
  22. ATIVAN [Concomitant]
     Dosage: 2 MG, PRN
     Route: 048
     Dates: start: 20100527
  23. ZESTRIL [Concomitant]
     Dosage: 10 MG, QD
  24. LOMOTIL [Concomitant]
     Dosage: UNK UNK, QD

REACTIONS (10)
  - JOINT DISLOCATION [None]
  - FATIGUE [None]
  - THROMBOCYTOPENIA [None]
  - ASTHENIA [None]
  - LUNG INFILTRATION [None]
  - IDIOPATHIC THROMBOCYTOPENIC PURPURA [None]
  - RECTAL HAEMORRHAGE [None]
  - DRUG INEFFECTIVE [None]
  - GASTROINTESTINAL HAEMORRHAGE [None]
  - ANAEMIA [None]
